FAERS Safety Report 21422889 (Version 3)
Quarter: 2023Q1

REPORT INFORMATION
  Report Type: Report from Study
  Country: US (occurrence: US)
  Receive Date: 20221007
  Receipt Date: 20230301
  Transmission Date: 20230418
  Serious: Yes (Other)
  Sender: FDA-Public Use
  Company Number: US-TAKEDA-2021TUS070882

PATIENT
  Sex: Female

DRUGS (6)
  1. BRIGATINIB [Suspect]
     Active Substance: BRIGATINIB
     Indication: Lung neoplasm malignant
     Dosage: 180 MILLIGRAM, QD
     Route: 048
     Dates: start: 20210624
  2. METOPROLOL [Concomitant]
     Active Substance: METOPROLOL
     Dosage: 12.5 MILLIGRAM, BID
     Route: 065
  3. METOPROLOL [Concomitant]
     Active Substance: METOPROLOL
     Dosage: 12.5 MILLIGRAM, QD
     Route: 065
  4. HYDROCODONE [Concomitant]
     Active Substance: HYDROCODONE
     Dosage: UNK
     Route: 065
  5. MEDROL [Concomitant]
     Active Substance: METHYLPREDNISOLONE
     Dosage: UNK
     Route: 065
  6. PREDNISONE [Concomitant]
     Active Substance: PREDNISONE
     Dosage: UNK
     Route: 065

REACTIONS (23)
  - Metastasis [Unknown]
  - Lung neoplasm malignant [Unknown]
  - Metastases to bone [Unknown]
  - Contusion [Unknown]
  - Positron emission tomogram abnormal [Unknown]
  - Memory impairment [Unknown]
  - Stress at work [Unknown]
  - Glycosylated haemoglobin increased [Unknown]
  - White blood cell count increased [Unknown]
  - Heart rate irregular [Recovered/Resolved]
  - Ventricular extrasystoles [Unknown]
  - Supraventricular extrasystoles [Unknown]
  - Anxiety [Unknown]
  - Blood pressure decreased [Unknown]
  - Somnolence [Unknown]
  - Malaise [Unknown]
  - Fatigue [Unknown]
  - Palpitations [Recovered/Resolved]
  - Photopsia [Unknown]
  - Decreased appetite [Unknown]
  - Diarrhoea [Unknown]
  - Blood pressure increased [Unknown]
  - Product dose omission issue [Unknown]
